FAERS Safety Report 9938465 (Version 2)
Quarter: 2014Q1

REPORT INFORMATION
  Report Type: Report from Study
  Country: PR (occurrence: PR)
  Receive Date: 20140303
  Receipt Date: 20140303
  Transmission Date: 20141002
  Serious: No
  Sender: FDA-Public Use
  Company Number: PR-ABBVIE-12P-131-0928499-00

PATIENT
  Age: 50 Year
  Sex: Male
  Weight: 124.85 kg

DRUGS (5)
  1. HUMIRA [Suspect]
     Indication: PSORIATIC ARTHROPATHY
     Route: 058
     Dates: start: 2000, end: 20121201
  2. CARDURA [Concomitant]
     Indication: HYPERTENSION
     Dosage: IN PM
     Route: 048
     Dates: start: 2008
  3. AVAPRO [Concomitant]
     Indication: HYPERTENSION
     Dosage: IN AM
     Route: 048
     Dates: start: 2009
  4. ALLEGRA [Concomitant]
     Indication: MULTIPLE ALLERGIES
     Dosage: PRN
     Route: 048
  5. PROTONIX [Concomitant]
     Indication: DYSPEPSIA
     Dosage: PRN
     Route: 048

REACTIONS (4)
  - Cough [Recovering/Resolving]
  - Drug ineffective [Unknown]
  - Nasopharyngitis [Recovering/Resolving]
  - Psoriasis [Not Recovered/Not Resolved]
